FAERS Safety Report 5703927-3 (Version None)
Quarter: 2008Q2

REPORT INFORMATION
  Report Type: 
  Country: None (occurrence: None)
  Receive Date: 20080409
  Receipt Date: 20080324
  Transmission Date: 20081010
  Serious: Yes (Death, Life-Threatening, Hospitalization, Disabling)
  Sender: FDA-Public Use
  Company Number: 2008US000854

PATIENT
  Sex: Female

DRUGS (2)
  1. AMBISOME [Suspect]
     Indication: FUNGAL INFECTION
     Dosage: 0.31 MG, UID/QD, IV NOS
     Route: 042
     Dates: start: 20080204, end: 20080209
  2. MYCAMINE [Concomitant]

REACTIONS (1)
  - NEPHROPATHY TOXIC [None]
